FAERS Safety Report 15936770 (Version 1)
Quarter: 2019Q1

REPORT INFORMATION
  Report Type: Spontaneous
  Country: US (occurrence: US)
  Receive Date: 20190207
  Receipt Date: 20190207
  Transmission Date: 20190417
  Serious: Yes (Life-Threatening, Disabling)
  Sender: FDA-Public Use
  Company Number: None

PATIENT
  Age: 40 Year
  Sex: Female
  Weight: 58.06 kg

DRUGS (1)
  1. PARAGARD T 380A [Suspect]
     Active Substance: COPPER

REACTIONS (13)
  - Fatigue [None]
  - Menorrhagia [None]
  - Cardiac disorder [None]
  - Haematochezia [None]
  - Pyrexia [None]
  - Vaginal infection [None]
  - Metal poisoning [None]
  - Gallbladder disorder [None]
  - Memory impairment [None]
  - Abdominal pain [None]
  - Loss of employment [None]
  - Blood pressure abnormal [None]
  - Nephrolithiasis [None]
